FAERS Safety Report 4628104-9 (Version None)
Quarter: 2005Q2

REPORT INFORMATION
  Report Type: 
  Country: None (occurrence: None)
  Receive Date: 20050406
  Receipt Date: 20050330
  Transmission Date: 20051028
  Serious: Yes (Hospitalization)
  Sender: FDA-Public Use
  Company Number: US-GLAXOSMITHKLINE-A0551948A

PATIENT
  Age: 53 Year
  Sex: Male

DRUGS (10)
  1. WELLBUTRIN [Suspect]
     Indication: DEPRESSION
     Dosage: 200MG TWICE PER DAY
     Route: 048
  2. EFFEXOR [Suspect]
     Dosage: 75MG PER DAY
     Route: 048
  3. REMERON [Concomitant]
  4. EFFEXOR [Concomitant]
  5. METFORMIN HCL [Concomitant]
  6. 70/30 HUMULIN INSULIN [Concomitant]
  7. LESCOL [Concomitant]
  8. LISINOPRIL [Concomitant]
  9. SEROQUEL [Concomitant]
  10. DEPAKOTE ER [Concomitant]

REACTIONS (3)
  - MOOD ALTERED [None]
  - PSYCHOTIC DISORDER [None]
  - SUICIDE ATTEMPT [None]
